FAERS Safety Report 5661773-3 (Version None)
Quarter: 2008Q1

REPORT INFORMATION
  Report Type: 
  Country: None (occurrence: None)
  Receive Date: 20080312
  Receipt Date: 20080304
  Transmission Date: 20080703
  Serious: Yes (Other)
  Sender: FDA-Public Use
  Company Number: US-JNJFOC-20080301068

PATIENT
  Age: 68 Year
  Sex: Male
  Weight: 92.99 kg

DRUGS (4)
  1. EXTRA STRENGTH TYLENOL [Suspect]
     Route: 048
  2. EXTRA STRENGTH TYLENOL [Suspect]
     Indication: MUSCULOSKELETAL PAIN
     Route: 048
  3. CELEBREX [Concomitant]
     Indication: INFLAMMATION
  4. COUMADIN [Concomitant]
     Indication: ANTICOAGULANT THERAPY

REACTIONS (1)
  - BLOOD URINE PRESENT [None]
